FAERS Safety Report 24387525 (Version 3)
Quarter: 2024Q4

REPORT INFORMATION
  Report Type: Report from Study
  Country: GB (occurrence: GB)
  Receive Date: 20241002
  Receipt Date: 20241125
  Transmission Date: 20250114
  Serious: Yes (Other)
  Sender: ROCHE
  Company Number: GB-ROCHE-10000089036

PATIENT
  Sex: Female

DRUGS (1)
  1. TOCILIZUMAB [Suspect]
     Active Substance: TOCILIZUMAB
     Indication: Giant cell arteritis
     Route: 058
     Dates: start: 20240902

REACTIONS (6)
  - Cerebral disorder [Unknown]
  - COVID-19 [Unknown]
  - Eye disorder [Unknown]
  - Gait disturbance [Unknown]
  - Inflammation [Unknown]
  - Off label use [Unknown]
